FAERS Safety Report 6123547-9 (Version None)
Quarter: 2009Q1

REPORT INFORMATION
  Report Type: 
  Country: None (occurrence: None)
  Receive Date: 20090318
  Receipt Date: 20090316
  Transmission Date: 20090719
  Serious: Yes (Other)
  Sender: FDA-Public Use
  Company Number: PT-BRISTOL-MYERS SQUIBB COMPANY-14441182

PATIENT
  Sex: Female

DRUGS (6)
  1. BUSPAR [Suspect]
     Indication: ANXIETY
     Dosage: ONE TAB IN THE MORNING
     Route: 048
  2. SERTRALINE [Concomitant]
  3. ANTIDEPRESSANT NOS [Concomitant]
  4. HYPNOTICS NOS [Concomitant]
  5. LORAZEPAM [Concomitant]
     Dosage: 1 DF= 2 OR 3 TABLETS
  6. COFFEE [Concomitant]

REACTIONS (3)
  - ROAD TRAFFIC ACCIDENT [None]
  - TREATMENT NONCOMPLIANCE [None]
  - VISION BLURRED [None]
